FAERS Safety Report 8666245 (Version 3)
Quarter: 2013Q4

REPORT INFORMATION
  Report Type: Spontaneous
  Country: US (occurrence: US)
  Receive Date: 20120716
  Receipt Date: 20131118
  Transmission Date: 20140711
  Serious: No
  Sender: FDA-Public Use
  Company Number: US-ASTRAZENECA-2012SE45312

PATIENT
  Age: 63 Year
  Sex: Female
  Weight: 82.6 kg

DRUGS (11)
  1. SYMBICORT [Suspect]
     Indication: ASTHMA
     Dosage: 80/4.5, 2 PUFFS  BID
     Route: 055
     Dates: start: 2010
  2. SYMBICORT [Suspect]
     Indication: ASTHMA
     Dosage: 160-4.5 BID
     Route: 055
     Dates: start: 2010
  3. INSULIN PUMP [Concomitant]
  4. LISINOPRIL [Concomitant]
     Indication: RENAL DISORDER
     Route: 048
  5. LISINOPRIL [Concomitant]
     Indication: HYPERTENSION
     Route: 048
  6. SIMVASTATIN [Concomitant]
     Indication: BLOOD CHOLESTEROL INCREASED
     Route: 048
  7. HYDROCHLOROTHIAZIDE [Concomitant]
  8. NEURONTIN [Concomitant]
     Indication: NEUROPATHY PERIPHERAL
  9. MULTIVITAMIN [Concomitant]
  10. BABY ASPIRIN [Concomitant]
     Dosage: DAILY
  11. NOVOLOG [Concomitant]
     Indication: DIABETES MELLITUS
     Route: 050

REACTIONS (7)
  - Bronchitis [Unknown]
  - Respiration abnormal [Unknown]
  - Wheezing [Not Recovered/Not Resolved]
  - Local swelling [Unknown]
  - Cough [Unknown]
  - Erythema [Unknown]
  - Drug dose omission [Unknown]
